FAERS Safety Report 5838787-3 (Version None)
Quarter: 2008Q3

REPORT INFORMATION
  Report Type: 
  Country: None (occurrence: None)
  Receive Date: 20080808
  Receipt Date: 20080728
  Transmission Date: 20090109
  Serious: Yes (Other)
  Sender: FDA-Public Use
  Company Number: US-ELI_LILLY_AND_COMPANY-US200807000048

PATIENT
  Age: 82 Year
  Sex: Female
  Weight: 51.247 kg

DRUGS (8)
  1. EVISTA [Suspect]
     Indication: OSTEOPOROSIS
     Dosage: 60 MG, UNK
     Dates: start: 20060701, end: 20080601
  2. PROTONIX [Concomitant]
     Dosage: 40 UNK, DAILY (1/D)
  3. LANOXIN [Concomitant]
     Dosage: 0.25 UNK, DAILY (1/D)
  4. GABAPENTIN [Concomitant]
     Dosage: 200 UNK, 2/D
  5. AMARYL [Concomitant]
     Dosage: 1 MG, DAILY (1/D)
  6. ADVAIR DISKUS 100/50 [Concomitant]
     Dosage: UNK, 2/D
  7. SPIRA [Concomitant]
     Dosage: UNK, DAILY (1/D)
  8. XOPENEX [Concomitant]
     Dosage: UNK, 4/D

REACTIONS (4)
  - BALANCE DISORDER [None]
  - DIZZINESS [None]
  - FALL [None]
  - VERTIGO [None]
